FAERS Safety Report 14847005 (Version 1)
Quarter: 2018Q2

REPORT INFORMATION
  Report Type: Spontaneous
  Country: US (occurrence: US)
  Receive Date: 20180504
  Receipt Date: 20180504
  Transmission Date: 20180711
  Serious: Yes (Death, Other)
  Sender: FDA-Public Use
  Company Number: US-SA-2016SA207379

PATIENT
  Age: 5 Year
  Sex: Male

DRUGS (5)
  1. ATORVASTATIN [Suspect]
     Active Substance: ATORVASTATIN
     Indication: HYPERLIPIDAEMIA
     Route: 065
  2. ALPRAZOLAM. [Suspect]
     Active Substance: ALPRAZOLAM
     Indication: INSOMNIA
     Route: 048
  3. ALPRAZOLAM. [Suspect]
     Active Substance: ALPRAZOLAM
     Indication: INSOMNIA
     Route: 048
  4. FLONASE [Concomitant]
     Active Substance: FLUTICASONE PROPIONATE
     Route: 065
  5. ZOLPIDEM [Suspect]
     Active Substance: ZOLPIDEM\ZOLPIDEM TARTRATE
     Indication: INSOMNIA
     Route: 048

REACTIONS (15)
  - Personality change [Unknown]
  - Completed suicide [Fatal]
  - Hypoacusis [Unknown]
  - Depression [Unknown]
  - Abnormal behaviour [Unknown]
  - Lethargy [Unknown]
  - Aggression [Unknown]
  - Insomnia [Unknown]
  - Paranoia [Unknown]
  - Myalgia [Unknown]
  - Amnesia [Unknown]
  - Staring [Unknown]
  - Eczema [Unknown]
  - Irritability [Unknown]
  - Fear [Unknown]
